FAERS Safety Report 20601309 (Version 4)
Quarter: 2022Q1

REPORT INFORMATION
  Report Type: Report from Study
  Country: US (occurrence: US)
  Receive Date: 20220316
  Receipt Date: 20220331
  Transmission Date: 20220424
  Serious: Yes (Hospitalization)
  Sender: FDA-Public Use
  Company Number: US-NOVARTISPH-NVSC2022US060156

PATIENT
  Age: 84 Year
  Sex: Female

DRUGS (1)
  1. ENTRESTO [Suspect]
     Active Substance: SACUBITRIL\VALSARTAN
     Indication: Product used for unknown indication
     Dosage: UNK UNK, BID
     Route: 048
     Dates: start: 20191201, end: 20220316

REACTIONS (6)
  - COVID-19 [Unknown]
  - Myocardial ischaemia [Unknown]
  - Respiration abnormal [Unknown]
  - Memory impairment [Unknown]
  - Depression [Unknown]
  - Cough [Unknown]

NARRATIVE: CASE EVENT DATE: 20191201
